FAERS Safety Report 6651573-X (Version None)
Quarter: 2010Q1

REPORT INFORMATION
  Report Type: 
  Country: None (occurrence: None)
  Receive Date: 20100325
  Receipt Date: 20100304
  Transmission Date: 20100710
  Serious: Yes (Other)
  Sender: FDA-Public Use
  Company Number: B0642697A

PATIENT
  Sex: Male

DRUGS (5)
  1. SALBUTAMOL [Suspect]
     Indication: ASTHMA
     Dosage: 100MCG PER DAY
     Route: 055
     Dates: start: 20090901, end: 20090901
  2. SINGULAIR [Concomitant]
     Indication: ASTHMA
     Route: 065
  3. AERIUS [Concomitant]
     Route: 065
  4. SERETIDE [Concomitant]
     Indication: ASTHMA
     Route: 065
  5. VENTOLIN [Concomitant]
     Indication: ASTHMA
     Route: 065

REACTIONS (1)
  - ASTHMA [None]
